FAERS Safety Report 6322798-8 (Version None)
Quarter: 2009Q3

REPORT INFORMATION
  Report Type: 
  Country: None (occurrence: None)
  Receive Date: 20090824
  Receipt Date: 20090306
  Transmission Date: 20100115
  Serious: No
  Sender: FDA-Public Use
  Company Number: US-ABBOTT-09P-163-0561114-00

PATIENT
  Sex: Male

DRUGS (6)
  1. NIASPAN [Suspect]
     Indication: BLOOD CHOLESTEROL INCREASED
     Dates: start: 20090302
  2. HEART PILL [Concomitant]
     Indication: DRUG USE FOR UNKNOWN INDICATION
  3. COUMADIN [Concomitant]
     Indication: DRUG USE FOR UNKNOWN INDICATION
  4. PILL FOR STOMACH ACID [Concomitant]
     Indication: DYSPEPSIA
  5. ASPIRIN [Concomitant]
     Indication: DRUG USE FOR UNKNOWN INDICATION
  6. TOLECTIN [Concomitant]
     Indication: ARTHRITIS

REACTIONS (1)
  - FLUSHING [None]
